FAERS Safety Report 24135718 (Version 1)
Quarter: 2024Q3

REPORT INFORMATION
  Report Type: Spontaneous
  Country: BE (occurrence: BE)
  Receive Date: 20240725
  Receipt Date: 20240725
  Transmission Date: 20241017
  Serious: Yes (Hospitalization)
  Sender: MYLAN
  Company Number: BE-MYLANLABS-2024M1068168

PATIENT
  Age: 15 Year
  Sex: Female
  Weight: 57 kg

DRUGS (1)
  1. ACETAMINOPHEN [Suspect]
     Active Substance: ACETAMINOPHEN
     Indication: Product used for unknown indication
     Dosage: 10 DOSAGE FORM;  SINGLE INGESTION OF 10 TABLETS OF PARACETAMOL 1 G (10 G OR 175 MG/KG)
     Route: 048

REACTIONS (4)
  - Acute kidney injury [Recovered/Resolved]
  - Suicide attempt [Recovered/Resolved]
  - Renal tubular necrosis [Recovered/Resolved]
  - Intentional overdose [Recovered/Resolved]
